FAERS Safety Report 20542697 (Version 2)
Quarter: 2022Q1

REPORT INFORMATION
  Report Type: Report from Study
  Country: CN (occurrence: CN)
  Receive Date: 20220302
  Receipt Date: 20220307
  Transmission Date: 20220423
  Serious: Yes (Hospitalization)
  Sender: FDA-Public Use
  Company Number: CN-GLAXOSMITHKLINE-CN2022GSK038271

PATIENT
  Age: 66 Year
  Sex: Male
  Weight: 65 kg

DRUGS (15)
  1. NIRAPARIB [Suspect]
     Active Substance: NIRAPARIB
     Indication: Small cell lung cancer
     Dosage: 200 MG, QD
     Route: 048
     Dates: start: 20211102, end: 20220125
  2. NIRAPARIB [Suspect]
     Active Substance: NIRAPARIB
     Dosage: 100 MG, QD
     Route: 048
     Dates: start: 20220215, end: 20220221
  3. CATEQUENTINIB DIHYDROCHLORIDE [Suspect]
     Active Substance: CATEQUENTINIB DIHYDROCHLORIDE
     Indication: Small cell lung cancer
     Dosage: 12 MG, QD
     Route: 048
     Dates: start: 20211102, end: 20220221
  4. POLAPREZINC [Concomitant]
     Active Substance: POLAPREZINC
     Indication: Gastrointestinal disorder
     Dosage: 75 MG, QD
     Dates: start: 20220125
  5. AMLODIPINE BESYLATE [Concomitant]
     Active Substance: AMLODIPINE BESYLATE
     Indication: Blood pressure increased
     Dosage: 2.5 MG, QD
     Dates: start: 20220125
  6. ASTRAGALUS MONGHOLICUS ROOT [Concomitant]
  7. ATRACTYLODES MACROCEPHALA [Concomitant]
  8. FALLOPIA MULTIFLORA ROOT TUBER [Concomitant]
  9. MORUS ALBA ROOT BARK [Concomitant]
  10. PAEONIA LACTIFLORA ROOT [Concomitant]
     Active Substance: PAEONIA LACTIFLORA ROOT
  11. SALVIA MILTIORRHIZA ROOT WITH RHIZOME [Concomitant]
  12. UREMIC CLEARANCE GRANULE [Concomitant]
     Indication: Blood creatinine increased
     Dosage: 5 G, TID
     Dates: start: 20220125
  13. ERYTHROPOIETIN INJECTION [Concomitant]
     Indication: Anaemia
     Dosage: 10000 IU, QD
     Route: 058
     Dates: start: 20220126
  14. RECOMBINANT HUMAN THROMBOPOIETIN INJECTION [Concomitant]
     Indication: Anaemia
     Dosage: 15000 IU, QD
     Route: 058
     Dates: start: 20220126
  15. RIVAROXABAN [Concomitant]
     Active Substance: RIVAROXABAN
     Indication: Thrombosis prophylaxis
     Dosage: 20 MG, QD
     Route: 048
     Dates: start: 20220215

REACTIONS (1)
  - Spinal cord compression [Unknown]

NARRATIVE: CASE EVENT DATE: 20220221
